FAERS Safety Report 8414752-7 (Version None)
Quarter: 2012Q2

REPORT INFORMATION
  Report Type: 
  Country: None (occurrence: None)
  Receive Date: 20120606
  Receipt Date: 20120525
  Transmission Date: 20120825
  Serious: Yes (Hospitalization, Other)
  Sender: FDA-Public Use
  Company Number: FR-BRISTOL-MYERS SQUIBB COMPANY-14755227

PATIENT
  Age: 29 Year
  Sex: Female

DRUGS (6)
  1. AMLODIPINE BESYLATE AND OLMESARTAN MEDOXOMIL [Concomitant]
  2. IRBESARTAN [Suspect]
     Indication: HYPERTENSION
     Route: 048
  3. ESIDRIX [Concomitant]
  4. ACETAMINOPHEN W/ CODEINE [Suspect]
     Dosage: ACETAMINOPHEN 500MG/PHOSPHATE CODEINE 30 MG 1DF=8 TO 16 TABS
     Route: 048
     Dates: start: 20050101
  5. EUPRESSYL [Concomitant]
  6. ATORVASTATIN [Concomitant]

REACTIONS (3)
  - OVERDOSE [None]
  - BLOOD PRESSURE INCREASED [None]
  - DRUG DEPENDENCE [None]
